FAERS Safety Report 12195525 (Version 1)
Quarter: 2016Q1

REPORT INFORMATION
  Report Type: Spontaneous
  Country: US (occurrence: US)
  Receive Date: 20160321
  Receipt Date: 20160321
  Transmission Date: 20160526
  Serious: No
  Sender: FDA-Public Use
  Company Number: US-ASTRAZENECA-2016SE21797

PATIENT
  Sex: Female

DRUGS (4)
  1. LACTULOSE. [Suspect]
     Active Substance: LACTULOSE
     Indication: CONSTIPATION
     Dosage: 60MG, EVERY OTHER DAY OR EVERY TWO DAYS WITH THE MOVANTIK.
     Route: 048
  2. METHADONE [Concomitant]
     Active Substance: METHADONE HYDROCHLORIDE
     Indication: PAIN
     Route: 048
  3. VICODIN [Concomitant]
     Active Substance: ACETAMINOPHEN\HYDROCODONE BITARTRATE
     Indication: PAIN
     Route: 048
  4. MOVANTIK [Suspect]
     Active Substance: NALOXEGOL OXALATE
     Indication: CONSTIPATION
     Route: 048

REACTIONS (12)
  - Constipation [Unknown]
  - Nervousness [Unknown]
  - Diarrhoea [Unknown]
  - Abdominal pain upper [Unknown]
  - Irritability [Unknown]
  - Chills [Unknown]
  - Intentional product misuse [Unknown]
  - Drug ineffective [Unknown]
  - Muscle spasms [Unknown]
  - General physical health deterioration [Unknown]
  - Hyperhidrosis [Unknown]
  - Nausea [Unknown]
